FAERS Safety Report 20960753 (Version 6)
Quarter: 2025Q4

REPORT INFORMATION
  Report Type: Spontaneous
  Country: EU (occurrence: EU)
  Receive Date: 20220615
  Receipt Date: 20251212
  Transmission Date: 20260119
  Serious: Yes (Hospitalization)
  Sender: AUROBINDO
  Company Number: EU-PFIZER INC-202200755251

PATIENT
  Age: 66 Year
  Sex: Female
  Weight: 65 kg

DRUGS (14)
  1. LETROZOLE [Suspect]
     Active Substance: LETROZOLE
     Indication: Breast cancer
     Dosage: 2.5 MILLIGRAM, ONCE A DAY
     Dates: start: 20220218, end: 20251106
  2. PALBOCICLIB [Suspect]
     Active Substance: PALBOCICLIB
     Indication: Breast cancer
     Dosage: 125 MILLIGRAM, CYCLICAL (DAILY FROM DAY 1 TO DAY 21 EVERY 28-DAY CYCLE )
     Dates: start: 20220218, end: 20220522
  3. PALBOCICLIB [Suspect]
     Active Substance: PALBOCICLIB
     Dosage: 100 MILLIGRAM, CYCLICAL (DAILY FROM DAY 1 TO DAY 21 EVERY 28-DAY CYCLE )
  4. METOCLOPRAMIDE [Concomitant]
     Active Substance: METOCLOPRAMIDE
     Indication: Prophylaxis
     Dosage: UNK
     Dates: start: 20220204, end: 20220331
  5. METOCLOPRAMIDE [Concomitant]
     Active Substance: METOCLOPRAMIDE
     Dosage: UNK
  6. LEVOTHYROXINE [Concomitant]
     Active Substance: LEVOTHYROXINE
     Indication: Autoimmune thyroiditis
     Dosage: UNK
  7. DIMENHYDRINATE [Concomitant]
     Active Substance: DIMENHYDRINATE
     Indication: Prophylaxis
     Dosage: UNK
  8. PANTOPRAZOLE [Concomitant]
     Active Substance: PANTOPRAZOLE
     Indication: Prophylaxis
     Dosage: UNK
  9. ARCOXIA [Concomitant]
     Active Substance: ETORICOXIB
     Indication: Bone pain
     Dosage: UNK
  10. AMOXICILLIN [Concomitant]
     Active Substance: AMOXICILLIN
     Indication: Prophylaxis
     Dosage: UNK
  11. OXYCODONE [Concomitant]
     Active Substance: OXYCODONE
     Indication: Bone pain
     Dosage: UNK
  12. MOVICOL [Concomitant]
     Active Substance: POLYETHYLENE GLYCOL 3350\POTASSIUM CHLORIDE\SODIUM BICARBONATE\SODIUM CHLORIDE
     Indication: Product used for unknown indication
     Dosage: UNK
  13. METAMIZOLE [Concomitant]
     Active Substance: METAMIZOLE
     Indication: Bone pain
     Dosage: UNK
  14. ZOMETA [Concomitant]
     Active Substance: ZOLEDRONIC ACID
     Indication: Metastases to bone
     Dosage: UNK

REACTIONS (2)
  - Febrile infection [Not Recovered/Not Resolved]
  - Escherichia urinary tract infection [Recovered/Resolved]

NARRATIVE: CASE EVENT DATE: 20220520
